FAERS Safety Report 26175679 (Version 1)
Quarter: 2025Q4

REPORT INFORMATION
  Report Type: Report from Study
  Country: EU (occurrence: EU)
  Receive Date: 20251218
  Receipt Date: 20251218
  Transmission Date: 20260118
  Serious: Yes (Hospitalization)
  Sender: ELI LILLY AND COMPANY
  Company Number: EU-009507513-2267084

PATIENT
  Age: 68 Year
  Sex: Male
  Weight: 65 kg

DRUGS (3)
  1. ALIMTA [Suspect]
     Active Substance: PEMETREXED DISODIUM
     Indication: Non-small cell lung cancer
     Dosage: 950 MG, DAILY (THERAPIE LINE: LINE 1 DAILY DOSE: 950 MG)
     Route: 065
     Dates: start: 20250211, end: 20250211
  2. PEMBROLIZUMAB [Suspect]
     Active Substance: PEMBROLIZUMAB
     Indication: Non-small cell lung cancer
     Dosage: 200 MG, DAILY (THERAPY LINE: LINE 1  DAILY DOSE (MG) 200)
     Route: 065
     Dates: start: 20250211, end: 20250415
  3. CARBOPLATIN [Suspect]
     Active Substance: CARBOPLATIN
     Indication: Non-small cell lung cancer
     Dosage: 650 MG, DAILY (THERAPY LINE: LINE 1  DAILY DOSE: 650 MG)
     Route: 065
     Dates: start: 20250211, end: 20250211

REACTIONS (2)
  - Peripheral ischaemia [Recovering/Resolving]
  - Sepsis [Recovering/Resolving]

NARRATIVE: CASE EVENT DATE: 20250226
